FAERS Safety Report 15202253 (Version 7)
Quarter: 2018Q4

REPORT INFORMATION
  Report Type: Report from Study
  Country: DE (occurrence: DE)
  Receive Date: 20180726
  Receipt Date: 20181119
  Transmission Date: 20190204
  Serious: Yes (Death, Disabling, Congenital Anomaly, Other)
  Sender: FDA-Public Use
  Company Number: DE-SA-2018SA201378

PATIENT
  Weight: .06 kg

DRUGS (15)
  1. RAMIPRIL. [Suspect]
     Active Substance: RAMIPRIL
     Dosage: MATERNAL DOSE 20 MG, UNK
     Route: 064
  2. ALISKIREN [Suspect]
     Active Substance: ALISKIREN
     Route: 064
  3. TACROLIMUS. [Suspect]
     Active Substance: TACROLIMUS
     Dosage: FROM GESTATIONAL WEEK 0-14
     Route: 064
  4. PREDNISOLONE. [Suspect]
     Active Substance: PREDNISOLONE
     Dosage: FROM GESTATIONAL WEEK 0-14
     Route: 064
  5. EZETIMIBE. [Suspect]
     Active Substance: EZETIMIBE
     Dosage: FROM GESTATIONAL WEEK 0-14
     Route: 064
  6. METAMIZOLE SODIUM [Suspect]
     Active Substance: METAMIZOLE SODIUM
     Dosage: FROM GESTATIONAL WEEK 0-14
     Route: 064
  7. HYDROXYCHLOROQUINE [Suspect]
     Active Substance: HYDROXYCHLOROQUINE
     Dosage: FROM GESTATIONAL WEEK 0-14
     Route: 064
  8. TORASEMIDE [Suspect]
     Active Substance: TORSEMIDE
     Dosage: FROM GESTATIONAL WEEK 0-14
     Route: 064
  9. XARELTO [Suspect]
     Active Substance: RIVAROXABAN
     Route: 064
  10. SALBUTAMOL SULFATE [Suspect]
     Active Substance: ALBUTEROL SULFATE
     Dosage: FROM GESTATIONAL WEEK 0-14
     Route: 064
  11. ENOXAPARIN SODIUM. [Suspect]
     Active Substance: ENOXAPARIN SODIUM
     Route: 064
  12. PANTOPRAZOLE [Suspect]
     Active Substance: PANTOPRAZOLE
     Dosage: FROM GESTATIONAL WEEK 0-14
     Route: 064
  13. ACETYLSALICYLIC ACID [Suspect]
     Active Substance: ASPIRIN
     Dosage: FROM GESTATIONAL WEEK 0-14
     Route: 064
  14. SIMVASTATIN. [Suspect]
     Active Substance: SIMVASTATIN
     Dosage: FROM GESTATIONAL WEEK 0-14
     Route: 064
  15. NICOTINE. [Suspect]
     Active Substance: NICOTINE
     Route: 064

REACTIONS (7)
  - Congenital cardiovascular anomaly [Fatal]
  - Death [Fatal]
  - Heart disease congenital [Fatal]
  - Truncus arteriosus persistent [Fatal]
  - Foetal exposure during pregnancy [Fatal]
  - Cardiac septal defect [Fatal]
  - Ventricular septal defect [Fatal]
